FAERS Safety Report 22928969 (Version 4)
Quarter: 2024Q1

REPORT INFORMATION
  Report Type: Report from Study
  Country: RU (occurrence: RU)
  Receive Date: 20230911
  Receipt Date: 20240208
  Transmission Date: 20240410
  Serious: Yes (Hospitalization)
  Sender: FDA-Public Use
  Company Number: RU-TAKEDA-2023TUS086548

PATIENT
  Age: 2 Year
  Sex: Male

DRUGS (4)
  1. TEDUGLUTIDE [Suspect]
     Active Substance: TEDUGLUTIDE
     Indication: Malabsorption
     Dosage: 0.05 MILLILITER
     Route: 050
     Dates: start: 20230116
  2. TEDUGLUTIDE [Suspect]
     Active Substance: TEDUGLUTIDE
     Indication: Malabsorption
     Dosage: 0.05 MILLILITER
     Route: 050
     Dates: start: 20230116
  3. TEDUGLUTIDE [Suspect]
     Active Substance: TEDUGLUTIDE
     Indication: Malabsorption
     Dosage: 0.05 MILLILITER
     Route: 050
     Dates: start: 20230116
  4. TEDUGLUTIDE [Suspect]
     Active Substance: TEDUGLUTIDE
     Indication: Malabsorption
     Dosage: 0.05 MILLILITER
     Route: 050
     Dates: start: 20230116

REACTIONS (6)
  - Retching [Recovered/Resolved]
  - Abdominal distension [Recovered/Resolved]
  - Malaise [Recovering/Resolving]
  - Body temperature increased [Recovering/Resolving]
  - Rhinorrhoea [Recovering/Resolving]
  - Cough [Recovering/Resolving]

NARRATIVE: CASE EVENT DATE: 20230817
